FAERS Safety Report 20420384 (Version 2)
Quarter: 2022Q1

REPORT INFORMATION
  Report Type: Spontaneous
  Country: PT (occurrence: PT)
  Receive Date: 20220203
  Receipt Date: 20220217
  Transmission Date: 20220424
  Serious: Yes (Life-Threatening, Hospitalization, Other)
  Sender: FDA-Public Use
  Company Number: PT-Accord-252183

PATIENT
  Age: 64 Year
  Sex: Female

DRUGS (5)
  1. MYCOPHENOLATE MOFETIL [Suspect]
     Active Substance: MYCOPHENOLATE MOFETIL
     Indication: Immunosuppression
  2. TACROLIMUS [Suspect]
     Active Substance: TACROLIMUS
     Indication: Immunosuppression
  3. BASILIXIMAB [Suspect]
     Active Substance: BASILIXIMAB
     Indication: Immunosuppression
  4. PREDNISOLONE [Suspect]
     Active Substance: PREDNISOLONE
     Indication: Immunosuppression
  5. VALGANCICLOVIR HYDROCHLORIDE [Concomitant]
     Active Substance: VALGANCICLOVIR HYDROCHLORIDE
     Indication: Antiviral prophylaxis
     Dosage: 3 TIMES PER WEEK.

REACTIONS (5)
  - Intestinal pseudo-obstruction [Recovered/Resolved]
  - Human herpesvirus 6 encephalitis [Recovered/Resolved]
  - Human herpesvirus 6 infection reactivation [Recovered/Resolved]
  - Multi-organ disorder [Recovered/Resolved]
  - Immunosuppressant drug level increased [Unknown]
